FAERS Safety Report 19523265 (Version 1)
Quarter: 2021Q3

REPORT INFORMATION
  Report Type: Spontaneous
  Country: US (occurrence: US)
  Receive Date: 20210712
  Receipt Date: 20210712
  Transmission Date: 20211014
  Serious: Yes (Other)
  Sender: FDA-Public Use
  Company Number: US-PFIZER INC-2021806541

PATIENT
  Age: 58 Year
  Sex: Female
  Weight: 173 kg

DRUGS (8)
  1. VERAPAMIL HCL [Interacting]
     Active Substance: VERAPAMIL HYDROCHLORIDE
     Indication: VENTRICULAR TACHYCARDIA
     Dosage: 120 MG, 1X/DAY, BY MOUTH ONCE A DAY
     Route: 048
     Dates: start: 2014
  2. HYDRALAZINE [Concomitant]
     Active Substance: HYDRALAZINE HYDROCHLORIDE
     Dosage: UNK
  3. VERAPAMIL HCL [Interacting]
     Active Substance: VERAPAMIL HYDROCHLORIDE
     Indication: BLOOD PRESSURE MEASUREMENT
     Dosage: 120 MG 2 TABLETS BY MOUTH ONCE A DAY
     Route: 048
     Dates: start: 2014, end: 20210603
  4. VERAPAMIL HCL [Interacting]
     Active Substance: VERAPAMIL HYDROCHLORIDE
     Dosage: 180 MG
     Dates: start: 2014, end: 20210603
  5. EPLERENONE. [Interacting]
     Active Substance: EPLERENONE
     Indication: HYPERPLASIA ADRENAL
     Dosage: 50 MG, 1X/DAY1 TABLET BY MOUTH ONCE A DAY
     Route: 048
     Dates: end: 20210603
  6. HYDRALAZINE [Concomitant]
     Active Substance: HYDRALAZINE HYDROCHLORIDE
     Indication: HYPERTENSION
     Dosage: UNK
  7. EPLERENONE. [Interacting]
     Active Substance: EPLERENONE
     Indication: BLOOD PRESSURE INCREASED
  8. EPLERENONE. [Suspect]
     Active Substance: EPLERENONE
     Indication: HYPERALDOSTERONISM
     Dosage: 25 MG
     Dates: start: 2015, end: 202105

REACTIONS (11)
  - Dysuria [Recovering/Resolving]
  - Blood bilirubin increased [Unknown]
  - Urinary casts [Unknown]
  - Renal pain [Recovering/Resolving]
  - Chromaturia [Recovered/Resolved]
  - Blood pressure increased [Unknown]
  - Drug interaction [Unknown]
  - Ocular icterus [Recovered/Resolved]
  - Off label use [Unknown]
  - Renal cyst [Unknown]
  - Nocturia [Recovering/Resolving]

NARRATIVE: CASE EVENT DATE: 202105
